FAERS Safety Report 25443178 (Version 1)
Quarter: 2025Q2

REPORT INFORMATION
  Report Type: Spontaneous
  Country: GB (occurrence: GB)
  Receive Date: 20250617
  Receipt Date: 20250617
  Transmission Date: 20250716
  Serious: Yes (Other)
  Sender: ACCORD
  Company Number: None

PATIENT
  Age: 23 Year
  Sex: Male
  Weight: 38 kg

DRUGS (3)
  1. QUETIAPINE [Suspect]
     Active Substance: QUETIAPINE
     Indication: Ill-defined disorder
     Dates: start: 20250605
  2. QUETIAPINE [Concomitant]
     Active Substance: QUETIAPINE
     Indication: Ill-defined disorder
     Dates: start: 20250501, end: 20250531
  3. UNIROID [Concomitant]
     Indication: Ill-defined disorder
     Dates: start: 20250512, end: 20250519

REACTIONS (2)
  - Anger [Recovering/Resolving]
  - Aggression [Recovering/Resolving]

NARRATIVE: CASE EVENT DATE: 20250605
